FAERS Safety Report 5951456-4 (Version None)
Quarter: 2008Q4

REPORT INFORMATION
  Report Type: 
  Country: None (occurrence: None)
  Receive Date: 20081111
  Receipt Date: 20081111
  Transmission Date: 20090506
  Serious: Yes (Life-Threatening)
  Sender: FDA-Public Use
  Company Number: None

PATIENT
  Age: 21 Year
  Sex: Female
  Weight: 68.0396 kg

DRUGS (2)
  1. SINEQUAN [Suspect]
     Indication: DEPRESSION
     Dosage: 150  1 PO; PO
     Route: 048
     Dates: start: 20070621, end: 20081104
  2. SINEQUAN [Suspect]
     Indication: IRRITABLE BOWEL SYNDROME
     Dosage: 150  1 PO; PO
     Route: 048
     Dates: start: 20070621, end: 20081104

REACTIONS (4)
  - CHEST PAIN [None]
  - ELECTROCARDIOGRAM ABNORMAL [None]
  - ELECTROCARDIOGRAM QT PROLONGED [None]
  - SYNCOPE [None]
